FAERS Safety Report 7708414-9 (Version None)
Quarter: 2011Q3

REPORT INFORMATION
  Report Type: 
  Country: None (occurrence: None)
  Receive Date: 20110825
  Receipt Date: 20110816
  Transmission Date: 20111222
  Serious: Yes (Hospitalization, Other)
  Sender: FDA-Public Use
  Company Number: CA-ELI_LILLY_AND_COMPANY-CA201108004965

PATIENT
  Sex: Female

DRUGS (7)
  1. ZYPREXA [Suspect]
     Indication: BIPOLAR DISORDER
     Dosage: 10 MG, QD
     Dates: start: 19980729
  2. PREMARIN [Concomitant]
  3. LAMOTRIGINE [Concomitant]
  4. PANTOLOC                           /01263202/ [Concomitant]
  5. INDERAL [Concomitant]
  6. AXID [Concomitant]
  7. TRAZODONE HYDROCHLORIDE [Concomitant]

REACTIONS (10)
  - SMALL INTESTINAL OBSTRUCTION [None]
  - HYPERGLYCAEMIA [None]
  - NEUTROPHIL COUNT INCREASED [None]
  - ALANINE AMINOTRANSFERASE INCREASED [None]
  - CEREBROVASCULAR ACCIDENT [None]
  - DIABETES MELLITUS [None]
  - WHITE BLOOD CELL COUNT INCREASED [None]
  - ASPARTATE AMINOTRANSFERASE INCREASED [None]
  - RECTAL HAEMORRHAGE [None]
  - WEIGHT INCREASED [None]
